FAERS Safety Report 9311027 (Version 3)
Quarter: 2013Q2

REPORT INFORMATION
  Report Type: Spontaneous
  Country: US (occurrence: US)
  Receive Date: 20130528
  Receipt Date: 20130612
  Transmission Date: 20140414
  Serious: Yes (Death)
  Sender: FDA-Public Use
  Company Number: US-COVIDIEN/TYCO HEALTHCARE/MALLINCKRODT-T201302420

PATIENT
  Age: 49 Year
  Sex: Male
  Weight: 117.91 kg

DRUGS (6)
  1. FENTANYL CITRATE [Suspect]
     Indication: PAIN
     Dosage: 1200 MCG Q 6 HRS PRN
     Route: 048
     Dates: start: 201209, end: 201212
  2. FENTANYL CITRATE [Suspect]
     Indication: PRODUCT USED FOR UNKNOWN INDICATION
  3. METHADONE [Concomitant]
     Indication: PAIN
     Dosage: 50 MG, TID
  4. DILAUDID [Concomitant]
     Indication: BREAKTHROUGH PAIN
     Dosage: 4 MG Q 4 HRS PRN
  5. VALIUM                             /00017001/ [Concomitant]
     Dosage: 10 MG, QHS, PRN
  6. XANAX [Concomitant]
     Dosage: 1 MG, QID, PRN

REACTIONS (1)
  - Death [Fatal]
